FAERS Safety Report 17976398 (Version 2)
Quarter: 2020Q3

REPORT INFORMATION
  Report Type: Spontaneous
  Country: BR (occurrence: BR)
  Receive Date: 20200703
  Receipt Date: 20200707
  Transmission Date: 20201103
  Serious: Yes (Other)
  Sender: FDA-Public Use
  Company Number: BR-JNJFOC-20200632204

PATIENT
  Sex: Male

DRUGS (1)
  1. IMOSEC [Suspect]
     Active Substance: LOPERAMIDE
     Indication: DIARRHOEA
     Route: 048

REACTIONS (5)
  - Decreased immune responsiveness [Unknown]
  - Therapeutic response delayed [Unknown]
  - Product compounding quality issue [Unknown]
  - Depressed mood [Unknown]
  - Packaging design issue [Unknown]
